FAERS Safety Report 8838872 (Version 1)
Quarter: 2012Q4

REPORT INFORMATION
  Report Type: Report from Study
  Country: BR (occurrence: BR)
  Receive Date: 20121015
  Receipt Date: 20121015
  Transmission Date: 20130627
  Serious: Yes (Other)
  Sender: FDA-Public Use
  Company Number: BR-US-EMD SERONO, INC.-7162935

PATIENT
  Age: 34 None
  Sex: Female

DRUGS (1)
  1. REBIF [Suspect]
     Indication: RELAPSING-REMITTING MULTIPLE SCLEROSIS
     Dates: start: 201012

REACTIONS (7)
  - Obesity surgery [Unknown]
  - Sciatica [Unknown]
  - Hypoaesthesia [Unknown]
  - Syncope [Unknown]
  - Urinary incontinence [Not Recovered/Not Resolved]
  - Micturition urgency [Unknown]
  - Depression [Unknown]
